FAERS Safety Report 16726479 (Version 2)
Quarter: 2019Q3

REPORT INFORMATION
  Report Type: Report from Study
  Country: US (occurrence: US)
  Receive Date: 20190821
  Receipt Date: 20190917
  Transmission Date: 20191005
  Serious: Yes (Hospitalization)
  Sender: FDA-Public Use
  Company Number: US-ACTELION-A-US2019-187939

PATIENT
  Age: 72 Year
  Sex: Female

DRUGS (6)
  1. OPSUMIT [Suspect]
     Active Substance: MACITENTAN
     Indication: PULMONARY ARTERIAL HYPERTENSION
     Dosage: UNK
     Route: 048
     Dates: start: 20180802, end: 20190303
  2. PLAVIX [Concomitant]
     Active Substance: CLOPIDOGREL BISULFATE
  3. OPSUMIT [Suspect]
     Active Substance: MACITENTAN
     Dosage: 10 MG, QD
     Route: 048
  4. OPSUMIT [Suspect]
     Active Substance: MACITENTAN
     Dosage: UNK
     Route: 048
     Dates: start: 20190309
  5. ASPIRIN. [Concomitant]
     Active Substance: ASPIRIN
  6. OPSUMIT [Suspect]
     Active Substance: MACITENTAN
     Dosage: 10 MG, QD
     Route: 048
     Dates: start: 20180726

REACTIONS (11)
  - Limb injury [Unknown]
  - Pain [Unknown]
  - Presyncope [Recovered/Resolved]
  - Therapeutic procedure [Unknown]
  - Carotid artery stenosis [Recovered/Resolved]
  - Cough [Recovered/Resolved]
  - Mitral valve thickening [Recovered/Resolved]
  - Sensory loss [Recovered/Resolved]
  - Hospitalisation [Not Recovered/Not Resolved]
  - Cerebrovascular disorder [Recovered/Resolved]
  - Dizziness [Recovered/Resolved]

NARRATIVE: CASE EVENT DATE: 20190303
